FAERS Safety Report 25942594 (Version 2)
Quarter: 2025Q4

REPORT INFORMATION
  Report Type: Report from Study
  Country: US (occurrence: US)
  Receive Date: 20251021
  Receipt Date: 20251022
  Transmission Date: 20260117
  Serious: Yes (Other)
  Sender: BRISTOL-MYERS SQUIBB COMPANY
  Company Number: US-BRISTOL-MYERS SQUIBB COMPANY-2025-027591

PATIENT
  Age: 75 Year
  Sex: Female
  Weight: 42.64 kg

DRUGS (10)
  1. CAMZYOS [Suspect]
     Active Substance: MAVACAMTEN
     Indication: Hypertrophic cardiomyopathy
     Dates: start: 20250110
  2. CAMZYOS [Suspect]
     Active Substance: MAVACAMTEN
     Indication: Illness
     Dates: start: 20250110
  3. CAMZYOS [Suspect]
     Active Substance: MAVACAMTEN
     Indication: Immunodeficiency common variable
     Dates: start: 20250110
  4. CAMZYOS [Suspect]
     Active Substance: MAVACAMTEN
  5. AZITHROMYCIN [Concomitant]
     Active Substance: AZITHROMYCIN
     Indication: Product used for unknown indication
  6. CLARITHROMYCIN [Concomitant]
     Active Substance: CLARITHROMYCIN
     Indication: Product used for unknown indication
  7. GENTAMICIN SULFATE [Concomitant]
     Active Substance: GENTAMICIN SULFATE
     Indication: Product used for unknown indication
  8. GAMUNEX [Concomitant]
     Active Substance: HUMAN IMMUNOGLOBULIN G
     Indication: Product used for unknown indication
  9. DIPHENHYDRAMINE [Concomitant]
     Active Substance: DIPHENHYDRAMINE
     Indication: Product used for unknown indication
  10. EPIPEN [Concomitant]
     Active Substance: EPINEPHRINE
     Indication: Product used for unknown indication
     Dosage: EPI-PENAUTOINJECTOR

REACTIONS (5)
  - Gastrooesophageal reflux disease [Unknown]
  - Drug effect less than expected [Unknown]
  - Hypersensitivity [Unknown]
  - Muscular weakness [Unknown]
  - Mast cell activation syndrome [Unknown]
